FAERS Safety Report 12410474 (Version 3)
Quarter: 2018Q1

REPORT INFORMATION
  Report Type: Report from Study
  Country: DE (occurrence: DE)
  Receive Date: 20160527
  Receipt Date: 20180104
  Transmission Date: 20180508
  Serious: Yes (Other)
  Sender: FDA-Public Use
  Company Number: DE-ROCHE-1764762

PATIENT
  Age: 78 Year
  Sex: Male

DRUGS (3)
  1. RANIBIZUMAB. [Suspect]
     Active Substance: RANIBIZUMAB
     Indication: MACULAR OEDEMA
     Dosage: IN LEFT EYE
     Route: 031
     Dates: start: 20160229
  2. RANIBIZUMAB. [Suspect]
     Active Substance: RANIBIZUMAB
     Indication: RETINAL VEIN OCCLUSION
     Dosage: IN LEFT EYE
     Route: 031
     Dates: start: 20160404
  3. RANIBIZUMAB. [Suspect]
     Active Substance: RANIBIZUMAB
     Dosage: IN LEFT EYE?MOST RECENT DOSE PRIOR TO EVENT 02/MAY/2016.
     Route: 031
     Dates: start: 20160502

REACTIONS (2)
  - Eye haemorrhage [Recovered/Resolved]
  - Cystoid macular oedema [Not Recovered/Not Resolved]

NARRATIVE: CASE EVENT DATE: 20160502
